FAERS Safety Report 9326070 (Version 2)
Quarter: 2013Q3

REPORT INFORMATION
  Report Type: Spontaneous
  Country: BR (occurrence: BR)
  Receive Date: 20130604
  Receipt Date: 20130726
  Transmission Date: 20140515
  Serious: Yes (Death, Life-Threatening)
  Sender: FDA-Public Use
  Company Number: BR-JNJFOC-20130521212

PATIENT
  Age: 66 Year
  Sex: Female
  Weight: 108 kg

DRUGS (4)
  1. XARELTO [Suspect]
     Indication: THROMBOSIS PROPHYLAXIS
     Route: 048
     Dates: start: 20130516
  2. XARELTO [Suspect]
     Indication: ANTICOAGULANT THERAPY
     Route: 048
     Dates: start: 20130516
  3. ENOXAPARIN [Concomitant]
     Indication: PERIPHERAL ARTERY THROMBOSIS
     Route: 058
  4. INSULIN [Concomitant]
     Route: 065

REACTIONS (4)
  - Cardiac fibrillation [Fatal]
  - Ventricular arrhythmia [Fatal]
  - Cardiac arrest [Fatal]
  - Ventricular arrhythmia [Recovered/Resolved]
